FAERS Safety Report 24228476 (Version 6)
Quarter: 2025Q3

REPORT INFORMATION
  Report Type: Spontaneous
  Country: US (occurrence: US)
  Receive Date: 20240820
  Receipt Date: 20250820
  Transmission Date: 20251020
  Serious: No
  Sender: PFIZER
  Company Number: US-PFIZER INC-202400238458

PATIENT
  Age: 89 Year
  Sex: Female

DRUGS (17)
  1. IBRANCE [Suspect]
     Active Substance: PALBOCICLIB
     Indication: Breast cancer female
     Route: 048
     Dates: start: 20240805, end: 20240903
  2. IBRANCE [Suspect]
     Active Substance: PALBOCICLIB
     Route: 048
  3. IBRANCE [Suspect]
     Active Substance: PALBOCICLIB
     Route: 048
     Dates: start: 20241217
  4. IBRANCE [Suspect]
     Active Substance: PALBOCICLIB
     Route: 048
     Dates: start: 20241217
  5. IBRANCE [Suspect]
     Active Substance: PALBOCICLIB
     Route: 048
     Dates: start: 20241217
  6. FULVESTRANT [Concomitant]
     Active Substance: FULVESTRANT
  7. IBUPROFEN [Concomitant]
     Active Substance: IBUPROFEN
  8. MAGNESIUM [Concomitant]
     Active Substance: MAGNESIUM
  9. VITAMIN B12 [Concomitant]
     Active Substance: CYANOCOBALAMIN
  10. VITAMIN C [Concomitant]
     Active Substance: ASCORBIC ACID
  11. XGEVA [Concomitant]
     Active Substance: DENOSUMAB
  12. CARVEDILOL [Concomitant]
     Active Substance: CARVEDILOL
  13. FUROSEMIDE [Concomitant]
     Active Substance: FUROSEMIDE
  14. MEMANTINE [Concomitant]
     Active Substance: MEMANTINE
  15. LEVOTHYROXINE [Concomitant]
     Active Substance: LEVOTHYROXINE
  16. PROBIOTICS NOS [Concomitant]
     Active Substance: PROBIOTICS NOS
  17. VITAMIN D NOS [Concomitant]
     Active Substance: CHOLECALCIFEROL\ERGOCALCIFEROL

REACTIONS (10)
  - Diarrhoea [Recovered/Resolved]
  - Decreased appetite [Not Recovered/Not Resolved]
  - Fatigue [Not Recovered/Not Resolved]
  - White blood cell count decreased [Unknown]
  - Urinary tract infection [Recovered/Resolved]
  - Dehydration [Recovering/Resolving]
  - Stress polycythaemia [Unknown]
  - Blood potassium decreased [Not Recovered/Not Resolved]
  - Weight decreased [Unknown]
  - Laboratory test abnormal [Unknown]

NARRATIVE: CASE EVENT DATE: 20240101
